FAERS Safety Report 5620604-8 (Version None)
Quarter: 2008Q1

REPORT INFORMATION
  Report Type: 
  Country: None (occurrence: None)
  Receive Date: 20080208
  Receipt Date: 20080108
  Transmission Date: 20080703
  Serious: No
  Sender: FDA-Public Use
  Company Number: US-BAYER-200810694NA

PATIENT
  Sex: Female

DRUGS (4)
  1. AVELOX [Suspect]
     Indication: SINUSITIS
     Route: 048
     Dates: start: 20071217
  2. FLONASE [Concomitant]
  3. ZYRTEC [Concomitant]
  4. CALCIUM GLUCONATE [Concomitant]

REACTIONS (4)
  - ABDOMINAL PAIN [None]
  - ERYTHEMA [None]
  - HYPERSENSITIVITY [None]
  - RASH [None]
